FAERS Safety Report 6335614-5 (Version None)
Quarter: 2009Q3

REPORT INFORMATION
  Report Type: 
  Country: None (occurrence: None)
  Receive Date: 20090831
  Receipt Date: 20090825
  Transmission Date: 20100115
  Serious: Yes (Death)
  Sender: FDA-Public Use
  Company Number: US-CELGENEUS-163-21880-09030616

PATIENT
  Sex: Female

DRUGS (2)
  1. REVLIMID [Suspect]
     Route: 048
     Dates: start: 20090123, end: 20090101
  2. TRANSFUSION [Concomitant]
     Route: 051

REACTIONS (4)
  - ACIDOSIS [None]
  - NEOPLASM PROGRESSION [None]
  - RENAL FAILURE [None]
  - SEPSIS SYNDROME [None]
